FAERS Safety Report 7391404-6 (Version None)
Quarter: 2011Q2

REPORT INFORMATION
  Report Type: 
  Country: None (occurrence: None)
  Receive Date: 20110404
  Receipt Date: 20110324
  Transmission Date: 20111010
  Serious: Yes (Life-Threatening, Hospitalization)
  Sender: FDA-Public Use
  Company Number: CH-SANOFI-AVENTIS-2011SA018072

PATIENT
  Age: 61 Year
  Sex: Male

DRUGS (9)
  1. NOVALGIN [Suspect]
     Indication: RHEUMATOID ARTHRITIS
     Route: 048
     Dates: start: 20110114, end: 20110117
  2. METHOTREXATE [Suspect]
     Indication: RHEUMATOID ARTHRITIS
     Route: 048
     Dates: start: 20100401, end: 20100922
  3. FLUDEX [Concomitant]
     Route: 048
     Dates: start: 20110203, end: 20110203
  4. SPIRONOLACTONE [Concomitant]
     Route: 048
     Dates: end: 20110131
  5. FUROSEMIDE [Concomitant]
     Route: 048
     Dates: end: 20110131
  6. ARAVA [Suspect]
     Indication: RHEUMATOID ARTHRITIS
     Route: 048
     Dates: start: 20100922, end: 20101122
  7. HUMIRA [Suspect]
     Indication: RHEUMATOID ARTHRITIS
     Route: 041
     Dates: start: 20110121, end: 20110121
  8. ETANERCEPT [Suspect]
     Indication: RHEUMATOID ARTHRITIS
     Route: 058
     Dates: start: 20101122, end: 20110121
  9. PREDNISONE [Suspect]
     Indication: RHEUMATOID ARTHRITIS
     Route: 048
     Dates: start: 20101015, end: 20101230

REACTIONS (6)
  - VENTRICULAR FIBRILLATION [None]
  - MENTAL STATUS CHANGES [None]
  - CARDIAC FAILURE [None]
  - CARDIAC ARREST [None]
  - AMYLOIDOSIS [None]
  - VENTRICULAR TACHYCARDIA [None]
